FAERS Safety Report 7452343-5 (Version None)
Quarter: 2011Q2

REPORT INFORMATION
  Report Type: 
  Country: None (occurrence: None)
  Receive Date: 20110502
  Receipt Date: 20101012
  Transmission Date: 20111010
  Serious: No
  Sender: FDA-Public Use
  Company Number: US-ASTRAZENECA-2010SE38918

PATIENT
  Age: 63 Year
  Sex: Female
  Weight: 152 kg

DRUGS (10)
  1. MULTI-VITAMIN [Concomitant]
  2. ALTACE [Concomitant]
  3. NEXIUM [Suspect]
     Indication: ULCER
     Route: 048
     Dates: start: 20100816
  4. FISHOILS [Concomitant]
  5. CARAFATE [Concomitant]
  6. TOPAMAX [Concomitant]
  7. IRON [Concomitant]
  8. ATENOLOL [Concomitant]
  9. PROZAC [Concomitant]
  10. CALCIUM [Concomitant]

REACTIONS (7)
  - BACK PAIN [None]
  - DIZZINESS [None]
  - NECK PAIN [None]
  - HYPOTENSION [None]
  - DYSPNOEA [None]
  - HEADACHE [None]
  - NAUSEA [None]
